FAERS Safety Report 7572448-8 (Version None)
Quarter: 2011Q2

REPORT INFORMATION
  Report Type: 
  Country: None (occurrence: None)
  Receive Date: 20110624
  Receipt Date: 20110621
  Transmission Date: 20111010
  Serious: Yes (Hospitalization)
  Sender: FDA-Public Use
  Company Number: US-GILEAD-2011-0039449

PATIENT
  Sex: Female
  Weight: 78.996 kg

DRUGS (3)
  1. OXYGEN [Concomitant]
  2. METOLAZONE [Concomitant]
  3. LETAIRIS [Suspect]
     Indication: PULMONARY HYPERTENSION
     Route: 048
     Dates: start: 20110101

REACTIONS (4)
  - BLOOD SODIUM DECREASED [None]
  - SWELLING [None]
  - WEIGHT INCREASED [None]
  - PAIN IN EXTREMITY [None]
